FAERS Safety Report 4603650-2 (Version None)
Quarter: 2005Q1

REPORT INFORMATION
  Report Type: 
  Country: None (occurrence: None)
  Receive Date: 20050308
  Receipt Date: 20050308
  Transmission Date: 20050727
  Serious: No
  Sender: FDA-Public Use
  Company Number: None

PATIENT
  Age: 55 Year
  Sex: Female
  Weight: 55.7924 kg

DRUGS (9)
  1. OXALIPLATIN [Suspect]
     Indication: COLON CANCER METASTATIC
     Dosage: 13.8 MG IV Q 3 WK
     Route: 042
     Dates: start: 20050301
  2. OXALIPLATIN [Suspect]
     Indication: COLON CANCER METASTATIC
     Dosage: 13.8 MG IV Q 3 WK
     Route: 042
     Dates: start: 20050308
  3. ANZEMET [Concomitant]
  4. BENADRYL [Concomitant]
  5. DECADRON [Concomitant]
  6. INAPSINE [Concomitant]
  7. FLUOROURACIL [Concomitant]
  8. LEUC [Concomitant]
  9. AVASTIN [Concomitant]

REACTIONS (3)
  - ERYTHEMA [None]
  - NAUSEA [None]
  - VOMITING [None]
